FAERS Safety Report 19061183 (Version 1)
Quarter: 2021Q1

REPORT INFORMATION
  Report Type: Spontaneous
  Country: US (occurrence: US)
  Receive Date: 20210325
  Receipt Date: 20210325
  Transmission Date: 20210420
  Serious: Yes (Life-Threatening, Hospitalization)
  Sender: FDA-Public Use
  Company Number: US-BEXIMCO-2021BEX00016

PATIENT
  Age: 78 Year
  Sex: Male

DRUGS (1)
  1. FLECAINIDE ACETATE. [Suspect]
     Active Substance: FLECAINIDE ACETATE
     Route: 065

REACTIONS (5)
  - Electrocardiogram QRS complex prolonged [Unknown]
  - Bradyarrhythmia [Unknown]
  - Toxicity to various agents [Unknown]
  - Intentional overdose [Unknown]
  - Suicide attempt [Unknown]
